FAERS Safety Report 4477070-8 (Version None)
Quarter: 2004Q4

REPORT INFORMATION
  Report Type: 
  Country: None (occurrence: None)
  Receive Date: 20041018
  Receipt Date: 20040615
  Transmission Date: 20050328
  Serious: Yes (Other)
  Sender: FDA-Public Use
  Company Number: PHEH2004US06538

PATIENT
  Age: 58 Year
  Sex: Male

DRUGS (6)
  1. ZOMETA [Suspect]
     Indication: MULTIPLE MYELOMA
     Dosage: 4 MG MONTHLY
     Route: 042
     Dates: start: 20020101, end: 20040701
  2. REVEMID [Concomitant]
     Indication: MULTIPLE MYELOMA
  3. DECADRON [Concomitant]
     Indication: MULTIPLE MYELOMA
     Dosage: 40 MG/DAY FOR 4 DAYS
  4. PAMIDRONATE DISODIUM [Suspect]
     Indication: MULTIPLE MYELOMA
     Dates: start: 19960101, end: 20020101
  5. EPOGEN [Concomitant]
  6. NEUPOGEN [Concomitant]

REACTIONS (10)
  - ARTHRALGIA [None]
  - BACK PAIN [None]
  - BONE PAIN [None]
  - COMPRESSION FRACTURE [None]
  - CONDITION AGGRAVATED [None]
  - CONSTIPATION [None]
  - DIARRHOEA [None]
  - LOW TURNOVER OSTEOPATHY [None]
  - OSTEOPENIA [None]
  - SURGERY [None]
